FAERS Safety Report 8166724-8 (Version None)
Quarter: 2012Q1

REPORT INFORMATION
  Report Type: 
  Country: None (occurrence: None)
  Receive Date: 20120227
  Receipt Date: 20120216
  Transmission Date: 20120608
  Serious: Yes (Death, Hospitalization, Other)
  Sender: FDA-Public Use
  Company Number: JP-ROCHE-696672

PATIENT
  Sex: Male
  Weight: 67 kg

DRUGS (3)
  1. AVASTIN [Suspect]
     Indication: LUNG ADENOCARCINOMA METASTATIC
     Route: 041
     Dates: start: 20100204, end: 20100302
  2. CARBOPLATIN [Concomitant]
     Route: 041
     Dates: start: 20100204, end: 20100302
  3. ALIMTA [Concomitant]
     Route: 041
     Dates: start: 20100204, end: 20100302

REACTIONS (3)
  - DISEASE PROGRESSION [None]
  - PULMONARY EMBOLISM [None]
  - DEEP VEIN THROMBOSIS [None]
